FAERS Safety Report 13622883 (Version 3)
Quarter: 2017Q3

REPORT INFORMATION
  Report Type: Spontaneous
  Country: SE (occurrence: SE)
  Receive Date: 20170607
  Receipt Date: 20170925
  Transmission Date: 20171127
  Serious: Yes (Other)
  Sender: FDA-Public Use
  Company Number: SE-GLAXOSMITHKLINE-SE2017GSK085803

PATIENT
  Age: 48 Year
  Sex: Male

DRUGS (1)
  1. NIQUITIN [Suspect]
     Active Substance: NICOTINE
     Indication: PRODUCT USED FOR UNKNOWN INDICATION
     Dosage: 4 MG, UNK
     Route: 065
     Dates: start: 201704, end: 20170518

REACTIONS (2)
  - Dental caries [Recovered/Resolved with Sequelae]
  - Saliva discolouration [Unknown]

NARRATIVE: CASE EVENT DATE: 20170518
